FAERS Safety Report 5861172-5 (Version None)
Quarter: 2008Q3

REPORT INFORMATION
  Report Type: 
  Country: None (occurrence: None)
  Receive Date: 20080827
  Receipt Date: 20080311
  Transmission Date: 20090109
  Serious: No
  Sender: FDA-Public Use
  Company Number: US-ABBOTT-08P-163-0441681-00

PATIENT
  Age: 56 Year
  Sex: Female

DRUGS (4)
  1. NIASPAN [Suspect]
     Indication: DRUG USE FOR UNKNOWN INDICATION
     Route: 048
     Dates: start: 20080201
  2. NIASPAN [Suspect]
     Route: 048
     Dates: start: 20071101, end: 20080201
  3. NIASPAN [Suspect]
     Dates: start: 20060101, end: 20071101
  4. TELMISARTAN [Concomitant]
     Indication: HYPERTENSION
     Route: 048

REACTIONS (2)
  - FLUSHING [None]
  - ORTHOSTATIC HYPOTENSION [None]
